FAERS Safety Report 6420682-2 (Version None)
Quarter: 2009Q4

REPORT INFORMATION
  Report Type: 
  Country: None (occurrence: None)
  Receive Date: 20091027
  Receipt Date: 20091013
  Transmission Date: 20100525
  Serious: Yes (Other)
  Sender: FDA-Public Use
  Company Number: 002103

PATIENT
  Sex: Female
  Weight: 76.2 kg

DRUGS (11)
  1. LACOSAMIDE [Suspect]
     Indication: CONVULSION
     Dosage: (250 MG BID ORAL)
     Route: 048
     Dates: start: 20090101
  2. LEVETIRACETAM [Suspect]
     Indication: CONVULSION
     Dosage: (1500 MG HS ORAL), (750 MG IN THE MORNING AND AFTERNOON ORAL), (500 MG TID ORAL)
     Route: 048
     Dates: start: 20070101, end: 20090101
  3. LEVETIRACETAM [Suspect]
     Indication: CONVULSION
     Dosage: (1500 MG HS ORAL), (750 MG IN THE MORNING AND AFTERNOON ORAL), (500 MG TID ORAL)
     Route: 048
     Dates: start: 20070101, end: 20090101
  4. LEVETIRACETAM [Suspect]
     Indication: CONVULSION
     Dosage: (1500 MG HS ORAL), (750 MG IN THE MORNING AND AFTERNOON ORAL), (500 MG TID ORAL)
     Route: 048
     Dates: start: 20090101
  5. ZONEGRAN [Concomitant]
  6. VESICARE /01735901/ [Concomitant]
  7. VALIUM [Concomitant]
  8. IMODIUM ADVANCED /01493801/ [Concomitant]
  9. LOPERAMIDE HYDROCHLORIDE [Concomitant]
  10. XYZAL [Concomitant]
  11. CHOLESTAPAL [Concomitant]

REACTIONS (12)
  - AFFECT LABILITY [None]
  - ALOPECIA [None]
  - AMNESIA [None]
  - CONVULSION [None]
  - CRYING [None]
  - DIARRHOEA [None]
  - FAECAL INCONTINENCE [None]
  - PERIVENTRICULAR NODULAR HETEROTOPIA [None]
  - SEDATION [None]
  - URINARY INCONTINENCE [None]
  - VISION BLURRED [None]
  - WEIGHT DECREASED [None]
